FAERS Safety Report 7426955-9 (Version None)
Quarter: 2011Q2

REPORT INFORMATION
  Report Type: 
  Country: None (occurrence: None)
  Receive Date: 20110420
  Receipt Date: 20101213
  Transmission Date: 20111010
  Serious: Yes (Other)
  Sender: FDA-Public Use
  Company Number: DE-PFIZER INC-2011084181

PATIENT
  Age: 37 Year
  Sex: Male
  Weight: 92 kg

DRUGS (1)
  1. VARENICLINE TARTRATE [Suspect]
     Indication: SMOKING CESSATION THERAPY
     Dosage: 1 MG, 2X/DAY
     Dates: start: 20101101, end: 20101201

REACTIONS (3)
  - DEPRESSED MOOD [None]
  - MOOD SWINGS [None]
  - APATHY [None]
